FAERS Safety Report 7767906-7 (Version None)
Quarter: 2011Q3

REPORT INFORMATION
  Report Type: 
  Country: None (occurrence: None)
  Receive Date: 20110922
  Receipt Date: 20110426
  Transmission Date: 20111222
  Serious: No
  Sender: FDA-Public Use
  Company Number: US-ASTRAZENECA-2011SE23870

PATIENT
  Age: 51 Year
  Sex: Male
  Weight: 103 kg

DRUGS (7)
  1. SEROQUEL XR [Suspect]
     Indication: SLEEP DISORDER
     Route: 048
     Dates: start: 20110401
  2. MELATONIN [Concomitant]
  3. SEROQUEL XR [Suspect]
     Indication: DEPRESSION
     Route: 048
     Dates: start: 20110401
  4. CYMBALTA [Concomitant]
  5. SEROQUEL XR [Suspect]
     Route: 048
     Dates: start: 20110401
  6. NEXIUM [Concomitant]
  7. SEROQUEL XR [Suspect]
     Route: 048
     Dates: start: 20110401

REACTIONS (4)
  - HANGOVER [None]
  - THERAPEUTIC RESPONSE UNEXPECTED [None]
  - WRONG TECHNIQUE IN DRUG USAGE PROCESS [None]
  - OFF LABEL USE [None]
